FAERS Safety Report 7108884-3 (Version None)
Quarter: 2010Q4

REPORT INFORMATION
  Report Type: 
  Country: None (occurrence: None)
  Receive Date: 20101112
  Receipt Date: 20101105
  Transmission Date: 20110411
  Serious: Yes (Death)
  Sender: FDA-Public Use
  Company Number: 2010MA004297

PATIENT
  Age: 60 Year
  Sex: Female

DRUGS (2)
  1. DIAZEPAM [Suspect]
     Indication: MOTOR NEURONE DISEASE
     Dosage: ;GT
  2. TRAMADOL HYDROCHLORIDE [Suspect]
     Indication: MOTOR NEURONE DISEASE
     Dosage: ;GT

REACTIONS (7)
  - COMPLETED SUICIDE [None]
  - DYSARTHRIA [None]
  - DYSPHAGIA [None]
  - MULTIPLE DRUG OVERDOSE INTENTIONAL [None]
  - MUSCLE SPASMS [None]
  - PNEUMONIA [None]
  - SUICIDAL IDEATION [None]
